FAERS Safety Report 15412992 (Version 1)
Quarter: 2018Q3

REPORT INFORMATION
  Report Type: Spontaneous
  Country: US (occurrence: US)
  Receive Date: 20180921
  Receipt Date: 20180921
  Transmission Date: 20181010
  Serious: No
  Sender: FDA-Public Use
  Company Number: US-TEVA-2018-US-955678

PATIENT
  Sex: Female

DRUGS (1)
  1. ALENDRONATE SODIUM. [Suspect]
     Active Substance: ALENDRONATE SODIUM
     Dosage: DOSE STRENGTH:  70
     Route: 065
     Dates: start: 2016

REACTIONS (2)
  - Yawning [Unknown]
  - Joint dislocation [Unknown]

NARRATIVE: CASE EVENT DATE: 201801
